FAERS Safety Report 5585746-4 (Version None)
Quarter: 2007Q4

REPORT INFORMATION
  Report Type: 
  Country: None (occurrence: None)
  Receive Date: 20071204
  Receipt Date: 20070612
  Transmission Date: 20080405
  Serious: Yes (Other)
  Sender: FDA-Public Use
  Company Number: 07-054

PATIENT
  Age: 56 Year
  Sex: Female
  Weight: 74.8435 kg

DRUGS (6)
  1. IBUPROFEN TABLETS [Suspect]
     Indication: HEADACHE
     Dosage: 1 TABLET 3 TIMES DAILY
     Dates: start: 20070607
  2. IBUPROFEN TABLETS [Suspect]
     Indication: INFLAMMATION
     Dosage: 1 TABLET 3 TIMES DAILY
     Dates: start: 20070607
  3. CYMBALTA [Concomitant]
  4. PREMARIN [Concomitant]
  5. LEVOTHYROXINE SODIUM [Concomitant]
  6. FUROSEMIDE [Concomitant]

REACTIONS (1)
  - PRURITUS GENERALISED [None]
